FAERS Safety Report 7687382-2 (Version None)
Quarter: 2011Q3

REPORT INFORMATION
  Report Type: 
  Country: None (occurrence: None)
  Receive Date: 20110816
  Receipt Date: 20110809
  Transmission Date: 20111222
  Serious: Yes (Other)
  Sender: FDA-Public Use
  Company Number: US-SANOFI-AVENTIS-2011SA051459

PATIENT
  Sex: Female

DRUGS (5)
  1. LANTUS [Suspect]
     Dosage: IN AM DOSE:54 UNIT(S)
     Route: 058
  2. SOLOSTAR [Suspect]
     Indication: TYPE 2 DIABETES MELLITUS
     Dates: start: 20060101
  3. PREDNISONE [Concomitant]
     Indication: COLITIS
  4. LANTUS [Suspect]
     Indication: TYPE 2 DIABETES MELLITUS
     Route: 058
     Dates: start: 20060101
  5. ALLOPURINOL [Concomitant]
     Indication: GOUT

REACTIONS (8)
  - GLYCOSYLATED HAEMOGLOBIN INCREASED [None]
  - WEIGHT DECREASED [None]
  - TREMOR [None]
  - BLOOD GLUCOSE INCREASED [None]
  - GOUT [None]
  - BLOOD GLUCOSE DECREASED [None]
  - ANXIETY [None]
  - KNEE ARTHROPLASTY [None]
